FAERS Safety Report 10050170 (Version 4)
Quarter: 2016Q3

REPORT INFORMATION
  Report Type: Report from Study
  Country: US (occurrence: US)
  Receive Date: 20140401
  Receipt Date: 20160707
  Transmission Date: 20161108
  Serious: Yes (Hospitalization, Other)
  Sender: FDA-Public Use
  Company Number: US-ABBVIE-10P-163-0637793-00

PATIENT
  Age: 25 Year
  Sex: Female
  Weight: 61.29 kg

DRUGS (12)
  1. VALIUM [Suspect]
     Active Substance: DIAZEPAM
     Indication: CROHN^S DISEASE
     Route: 048
     Dates: start: 20090706, end: 20100321
  2. VALIUM [Suspect]
     Active Substance: DIAZEPAM
     Indication: ANXIETY
  3. PHENERGAN [Concomitant]
     Active Substance: PROMETHAZINE HYDROCHLORIDE
     Indication: CROHN^S DISEASE
  4. PROTONIX [Concomitant]
     Active Substance: PANTOPRAZOLE SODIUM
     Indication: GASTROOESOPHAGEAL REFLUX DISEASE
     Dates: start: 20090706, end: 20100321
  5. PHENERGAN [Concomitant]
     Active Substance: PROMETHAZINE HYDROCHLORIDE
     Indication: NAUSEA
     Dates: start: 20090706, end: 20100321
  6. INFLUENZA [Concomitant]
     Active Substance: INFLUENZA VIRUS VACCINE
     Indication: INFLUENZA IMMUNISATION
     Dosage: 1 SHOT
     Route: 050
     Dates: start: 20091008, end: 20091008
  7. PRENATAL VITAMINS [Concomitant]
     Active Substance: VITAMINS
     Indication: PRODUCT USED FOR UNKNOWN INDICATION
     Route: 048
     Dates: start: 20090706, end: 20100321
  8. TYLENOL [Concomitant]
     Active Substance: ACETAMINOPHEN
     Indication: PRODUCT USED FOR UNKNOWN INDICATION
     Dosage: 2 TABS 3.4 DAY
     Dates: start: 20100213, end: 20100217
  9. PREDNISONE. [Concomitant]
     Active Substance: PREDNISONE
     Indication: CROHN^S DISEASE
     Route: 048
  10. FOLIC ACID. [Concomitant]
     Active Substance: FOLIC ACID
     Indication: PRODUCT USED FOR UNKNOWN INDICATION
     Route: 048
     Dates: start: 20090714, end: 20090716
  11. HUMIRA [Suspect]
     Active Substance: ADALIMUMAB
     Indication: CROHN^S DISEASE
     Route: 058
     Dates: start: 200811, end: 200902
  12. HUMIRA [Suspect]
     Active Substance: ADALIMUMAB
     Indication: PSORIASIS
     Route: 058
     Dates: start: 20090206, end: 20100321

REACTIONS (23)
  - Hyperthermia [Recovered/Resolved]
  - Respiratory tract infection [Unknown]
  - Fistula [Recovering/Resolving]
  - Premature labour [Recovered/Resolved]
  - Cardiac murmur [Unknown]
  - Palpitations [Recovered/Resolved]
  - Road traffic accident [Unknown]
  - Migraine [Unknown]
  - Placenta praevia [Recovered/Resolved]
  - Premature separation of placenta [Recovered/Resolved]
  - Staphylococcal infection [Unknown]
  - Premature labour [Recovered/Resolved]
  - Cough [Recovered/Resolved]
  - Malaise [Recovered/Resolved]
  - Fall [Unknown]
  - Nausea [Unknown]
  - Gastrointestinal infection [Unknown]
  - Anal fistula [Recovered/Resolved]
  - Pyrexia [Unknown]
  - Road traffic accident [Unknown]
  - Nasopharyngitis [Unknown]
  - Respiratory tract infection [Recovered/Resolved]
  - Dizziness [Unknown]

NARRATIVE: CASE EVENT DATE: 200907
